FAERS Safety Report 7764167-X (Version None)
Quarter: 2011Q3

REPORT INFORMATION
  Report Type: 
  Country: None (occurrence: None)
  Receive Date: 20110916
  Receipt Date: 20110906
  Transmission Date: 20111222
  Serious: Yes (Other)
  Sender: FDA-Public Use
  Company Number: 1000023791

PATIENT
  Age: 61 Year
  Sex: Female

DRUGS (6)
  1. TIOTROPIUM [Concomitant]
  2. IBANDRONATE SODIUM [Concomitant]
  3. OMEPRAZOLE [Concomitant]
  4. ROFLUMILAST (ROFLUMILAST) (TABLETS) [Suspect]
     Dates: start: 20110817
  5. LEVOTHYROXINE SODIUM [Concomitant]
  6. SALMETEROL [Concomitant]

REACTIONS (4)
  - INCORRECT ROUTE OF DRUG ADMINISTRATION [None]
  - DIZZINESS [None]
  - NAUSEA [None]
  - MALAISE [None]
